FAERS Safety Report 5501654-9 (Version None)
Quarter: 2007Q4

REPORT INFORMATION
  Report Type: 
  Country: None (occurrence: None)
  Receive Date: 20071026
  Receipt Date: 20071026
  Transmission Date: 20080405
  Serious: No
  Sender: FDA-Public Use
  Company Number: None

PATIENT
  Age: 57 Year
  Sex: Male
  Weight: 124.7392 kg

DRUGS (1)
  1. VIAGRA [Suspect]
     Indication: ERECTILE DYSFUNCTION
     Dosage: 2X A WEEK PO
     Route: 048
     Dates: start: 20000101, end: 20051210

REACTIONS (3)
  - ACCIDENT [None]
  - DEAFNESS UNILATERAL [None]
  - INJURY [None]
